FAERS Safety Report 24953731 (Version 1)
Quarter: 2025Q1

REPORT INFORMATION
  Report Type: Spontaneous
  Country: FR (occurrence: FR)
  Receive Date: 20250211
  Receipt Date: 20250211
  Transmission Date: 20250408
  Serious: Yes (Hospitalization)
  Sender: GILEAD
  Company Number: None

PATIENT
  Age: 71 Year
  Sex: Female

DRUGS (2)
  1. TRUVADA [Suspect]
     Active Substance: EMTRICITABINE\TENOFOVIR DISOPROXIL FUMARATE
     Indication: HIV infection
     Dosage: 5 DOSAGE FORM, Q1WK
     Route: 048
     Dates: start: 20200928
  2. ISENTRESS [Suspect]
     Active Substance: RALTEGRAVIR POTASSIUM
     Indication: HIV infection
     Dosage: 10 DOSAGE FORM, Q1WK
     Route: 048
     Dates: start: 20200928

REACTIONS (1)
  - Pleural calcification [Recovering/Resolving]

NARRATIVE: CASE EVENT DATE: 20240515
